FAERS Safety Report 8385720-9 (Version None)
Quarter: 2012Q2

REPORT INFORMATION
  Report Type: 
  Country: None (occurrence: None)
  Receive Date: 20120523
  Receipt Date: 20120508
  Transmission Date: 20120825
  Serious: Yes (Death, Other)
  Sender: FDA-Public Use
  Company Number: HA12-153-AE

PATIENT
  Age: 66 Year
  Sex: Female
  Weight: 37.8 kg

DRUGS (8)
  1. CAPTOPRIL [Concomitant]
  2. ACETYLSALICYLIC ACID SRT [Concomitant]
  3. NEXIUM [Concomitant]
  4. CELECOXIB; IBUPROFEN; PLACEBO [Suspect]
     Indication: RHEUMATOID ARTHRITIS
     Dosage: THREE TIMES A DAY, ORAL
     Route: 048
     Dates: start: 20090305, end: 20111112
  5. CELECOXIB; IBUPROFEN; PLACEBO [Suspect]
     Indication: OSTEOARTHRITIS
     Dosage: THREE TIMES A DAY, ORAL
     Route: 048
     Dates: start: 20090305, end: 20111112
  6. NAPROXEN [Suspect]
     Indication: OSTEOARTHRITIS
     Dosage: THREE TIMES A DAY, ORAL
     Route: 048
     Dates: start: 20090305, end: 20111112
  7. NAPROXEN [Suspect]
     Indication: RHEUMATOID ARTHRITIS
     Dosage: THREE TIMES A DAY, ORAL
     Route: 048
     Dates: start: 20090305, end: 20111112
  8. ATORVASTATIN CALCIUM [Concomitant]

REACTIONS (17)
  - BLOOD FOLATE INCREASED [None]
  - TUBERCULOSIS [None]
  - RESPIRATORY FAILURE [None]
  - IRON DEFICIENCY ANAEMIA [None]
  - GLOMERULONEPHRITIS [None]
  - ADVERSE DRUG REACTION [None]
  - RENAL FAILURE [None]
  - PULMONARY FIBROSIS [None]
  - BLOOD BICARBONATE INCREASED [None]
  - GASTRIC HAEMORRHAGE [None]
  - NEPHROPATHY TOXIC [None]
  - MEAN CELL VOLUME INCREASED [None]
  - BLOOD CHLORIDE DECREASED [None]
  - BLOOD PRESSURE SYSTOLIC INCREASED [None]
  - BLOOD GLUCOSE INCREASED [None]
  - OCCULT BLOOD POSITIVE [None]
  - RENAL TUBULAR NECROSIS [None]
